FAERS Safety Report 9647738 (Version 1)
Quarter: 2013Q4

REPORT INFORMATION
  Report Type: Spontaneous
  Country: US (occurrence: None)
  Receive Date: 20131024
  Receipt Date: 20131024
  Transmission Date: 20140711
  Serious: Yes (Other)
  Sender: FDA-Public Use
  Company Number: None

PATIENT
  Age: 7 Year
  Sex: Male
  Weight: 36.29 kg

DRUGS (4)
  1. MONTELUKAST [Suspect]
     Indication: MULTIPLE ALLERGIES
     Dosage: 1 TABLET
     Route: 048
     Dates: start: 20130501, end: 20131018
  2. CETIRIZINE HYDROCHLORIDE [Suspect]
  3. FLUTICASONE PROPIONATE [Suspect]
     Dosage: 2 SPRAYS IN EACH NOSTRIL IN THE EVENING
  4. CHEWABLE CHILDRENS VITAMIN [Concomitant]

REACTIONS (1)
  - Aggression [None]
